FAERS Safety Report 23626810 (Version 3)
Quarter: 2025Q3

REPORT INFORMATION
  Report Type: Spontaneous
  Country: US (occurrence: US)
  Receive Date: 20240313
  Receipt Date: 20250912
  Transmission Date: 20251021
  Serious: Yes (Hospitalization, Other)
  Sender: RANBAXY
  Company Number: US-SUN PHARMACEUTICAL INDUSTRIES LTD-2024R1-435609

PATIENT
  Age: 53 Year
  Sex: Male

DRUGS (2)
  1. CARVEDILOL [Suspect]
     Active Substance: CARVEDILOL
     Indication: Product used for unknown indication
     Route: 065
  2. NIFEDIPINE [Suspect]
     Active Substance: NIFEDIPINE
     Indication: Product used for unknown indication
     Route: 065

REACTIONS (6)
  - Respiratory acidosis [Recovered/Resolved]
  - Intentional overdose [Unknown]
  - Pulse pressure increased [Recovered/Resolved]
  - Acute respiratory distress syndrome [Recovered/Resolved]
  - Generalised oedema [Recovered/Resolved]
  - Distributive shock [Recovering/Resolving]
